FAERS Safety Report 6332319-1 (Version None)
Quarter: 2009Q3

REPORT INFORMATION
  Report Type: 
  Country: None (occurrence: None)
  Receive Date: 20090828
  Receipt Date: 20090820
  Transmission Date: 20100115
  Serious: Yes (Other)
  Sender: FDA-Public Use
  Company Number: PHHY2009DE35652

PATIENT
  Sex: Female

DRUGS (6)
  1. METOPROLOL [Suspect]
     Indication: HYPERTENSION
     Dosage: 47.5 MG, BID
     Dates: start: 20080519
  2. AMLODIPINE [Concomitant]
     Indication: HYPERTENSION
     Dosage: 10 MG/DAY
     Dates: start: 20080630
  3. TORASEMIDE [Concomitant]
     Indication: HYPERTENSION
     Dosage: 5 MG/DAY
     Dates: start: 20080630
  4. RAMIPRIL [Concomitant]
     Indication: HYPERTENSION
     Dosage: 5 MG/DAY
     Dates: start: 20080630, end: 20081002
  5. ASPIRIN [Concomitant]
     Indication: PERIPHERAL ARTERIAL OCCLUSIVE DISEASE
     Dosage: 100 MG/DAY
     Dates: start: 20080630
  6. BETA BLOCKING AGENTS [Concomitant]

REACTIONS (2)
  - BLOOD PRESSURE INCREASED [None]
  - LEFT VENTRICULAR FAILURE [None]
